FAERS Safety Report 9501077 (Version 3)
Quarter: 2013Q3

REPORT INFORMATION
  Report Type: Spontaneous
  Country: CN (occurrence: CN)
  Receive Date: 20130905
  Receipt Date: 20130911
  Transmission Date: 20140515
  Serious: Yes (Other)
  Sender: FDA-Public Use
  Company Number: CN-PFIZER INC-2013154875

PATIENT
  Age: 43 Year
  Sex: Male
  Weight: 80 kg

DRUGS (10)
  1. SULPERAZON [Suspect]
     Indication: ANTIBIOTIC THERAPY
     Dosage: 1.5 G, 2X/DAY
     Route: 041
     Dates: start: 20120417, end: 20120420
  2. TAZOCIN [Suspect]
     Dosage: 4.5 G, 2X/DAY
     Route: 041
     Dates: start: 20120420, end: 20120425
  3. DIFLUCAN [Suspect]
     Indication: ANTIBIOTIC THERAPY
     Dosage: 200 MG, 1X/DAY
     Route: 041
     Dates: start: 20120426, end: 20120510
  4. MANNITOL [Concomitant]
     Indication: DEHYDRATION
     Dosage: 125 ML, 3X/DAY
     Route: 041
     Dates: start: 20120415
  5. FUROSEMIDE [Concomitant]
     Indication: DIURETIC THERAPY
     Dosage: 20 MG, 1X/DAY
     Route: 042
     Dates: start: 20120415
  6. OMEPRAZOLE [Concomitant]
     Dosage: 40 MG, 1X/DAY
     Route: 041
     Dates: start: 20120415
  7. NITROGLYCERIN [Concomitant]
     Dosage: UNK
     Route: 042
     Dates: start: 20120415, end: 20120420
  8. NITROPRUSSIDE SODIUM [Concomitant]
     Dosage: 5 MG PER HOUR
     Route: 042
     Dates: start: 20120415, end: 20120417
  9. NALMEFENE HYDROCHLORIDE [Concomitant]
     Dosage: 0.2 MG, 1X/DAY
     Route: 042
     Dates: start: 20120415
  10. CEFOXITIN SODIUM [Concomitant]
     Indication: INFECTION PROPHYLAXIS
     Dosage: 2 G, 2X/DAY
     Route: 041
     Dates: start: 20120415, end: 20120417

REACTIONS (2)
  - Renal impairment [Recovering/Resolving]
  - Hepatic function abnormal [Recovering/Resolving]
